FAERS Safety Report 6598858-3 (Version None)
Quarter: 2010Q1

REPORT INFORMATION
  Report Type: 
  Country: None (occurrence: None)
  Receive Date: 20100224
  Receipt Date: 20100210
  Transmission Date: 20100710
  Serious: No
  Sender: FDA-Public Use
  Company Number: US-B.I. PHARMACEUTICALS,INC./RIDGEFIELD-2006-BP-08472BP

PATIENT
  Sex: Female

DRUGS (6)
  1. COMBIVENT [Suspect]
     Indication: CHRONIC OBSTRUCTIVE PULMONARY DISEASE
     Dosage: 12 PUF
     Route: 055
  2. FLOVENT [Concomitant]
  3. SEREVENT [Concomitant]
  4. ALBUTEROL [Concomitant]
  5. COZAAR [Concomitant]
  6. BUSPAR [Concomitant]

REACTIONS (2)
  - DIZZINESS [None]
  - NERVOUSNESS [None]
